FAERS Safety Report 6819287-0 (Version None)
Quarter: 2010Q3

REPORT INFORMATION
  Report Type: 
  Country: None (occurrence: None)
  Receive Date: 20100707
  Receipt Date: 20090721
  Transmission Date: 20110219
  Serious: Yes (Hospitalization)
  Sender: FDA-Public Use
  Company Number: US-ASTRAZENECA-2010SE31254

PATIENT
  Age: 21419 Day
  Sex: Male
  Weight: 101.2 kg

DRUGS (3)
  1. SEROQUEL [Suspect]
     Indication: NIGHTMARE
     Route: 048
     Dates: start: 20050701
  2. ASPIRIN [Concomitant]
     Indication: THROMBOSIS
     Route: 048
     Dates: start: 20051114
  3. MULTI-VITAMIN [Concomitant]
     Route: 048
     Dates: start: 20051114

REACTIONS (5)
  - DIABETIC NEUROPATHY [None]
  - HYPERLIPIDAEMIA [None]
  - HYPERTENSION [None]
  - NICOTINE DEPENDENCE [None]
  - SYNCOPE [None]
